FAERS Safety Report 17789889 (Version 4)
Quarter: 2021Q2

REPORT INFORMATION
  Report Type: Report from Study
  Country: None (occurrence: GB)
  Receive Date: 20200514
  Receipt Date: 20210602
  Transmission Date: 20210716
  Serious: Yes (Hospitalization, Other)
  Sender: FDA-Public Use
  Company Number: GB-ABBVIE-20K-167-3397463-00

PATIENT
  Age: 16 Year
  Sex: Female
  Weight: 57.2 kg

DRUGS (42)
  1. SODIUM PICOSULPHATE [Concomitant]
     Active Substance: SODIUM PICOSULFATE
     Indication: LAXATIVE SUPPORTIVE CARE
     Route: 048
     Dates: start: 20190308, end: 20190314
  2. SODIUM PICOSULPHATE [Concomitant]
     Active Substance: SODIUM PICOSULFATE
     Route: 048
     Dates: start: 20190709
  3. RELAXIT [Concomitant]
     Indication: CONSTIPATION
     Dosage: MICRO ENEMA ONCE AT NIGHT AS REQUIRED
     Route: 054
     Dates: start: 20190822, end: 20200416
  4. BETNOVATE [Concomitant]
     Active Substance: BETAMETHASONE
     Indication: SEBORRHOEIC DERMATITIS
     Dosage: ALTERNATE DAYS FOR TWO WEEKS, THEN ONCE WEEKLY(AS DIRECTED)
     Route: 061
     Dates: start: 20191128
  5. LAXIDO [Concomitant]
     Active Substance: POLYETHYLENE GLYCOL 3350\POTASSIUM CHLORIDE\SODIUM BICARBONATE\SODIUM CHLORIDE
     Indication: CONSTIPATION
     Dosage: 1?2 SACHETS
     Route: 048
     Dates: start: 20190805, end: 20190812
  6. DOMPERIDONE MALEATE [Concomitant]
     Active Substance: DOMPERIDONE MALEATE
     Indication: CROHN^S DISEASE
     Route: 048
     Dates: start: 20200601, end: 20200608
  7. METHOTREXATE. [Suspect]
     Active Substance: METHOTREXATE
     Indication: CROHN^S DISEASE
     Route: 048
     Dates: start: 20121011, end: 20190614
  8. METHOTREXATE. [Suspect]
     Active Substance: METHOTREXATE
     Route: 048
     Dates: start: 20200418
  9. SODIUM PICOSULPHATE [Concomitant]
     Active Substance: SODIUM PICOSULFATE
     Route: 048
     Dates: start: 20190320, end: 20190617
  10. PARACETAMOL [Concomitant]
     Active Substance: ACETAMINOPHEN
     Indication: ANALGESIC THERAPY
     Route: 048
     Dates: start: 20190626
  11. ONDANSETRON [Concomitant]
     Active Substance: ONDANSETRON
     Indication: VOMITING
  12. GAVISCON ADVANCE [Concomitant]
     Active Substance: POTASSIUM BICARBONATE\SODIUM ALGINATE
     Indication: GASTROOESOPHAGEAL REFLUX DISEASE
     Route: 048
     Dates: start: 20190802
  13. MOVICOL [Concomitant]
     Active Substance: POLYETHYLENE GLYCOL 3350\POTASSIUM CHLORIDE\SODIUM BICARBONATE\SODIUM CHLORIDE
     Indication: CONSTIPATION
     Route: 048
     Dates: start: 20191220, end: 20200207
  14. HUMIRA [Suspect]
     Active Substance: ADALIMUMAB
     Route: 058
     Dates: start: 20180507, end: 20190325
  15. METHOTREXATE. [Suspect]
     Active Substance: METHOTREXATE
     Route: 048
     Dates: start: 20190628, end: 20200328
  16. SODIUM PICOSULPHATE [Concomitant]
     Active Substance: SODIUM PICOSULFATE
     Indication: CONSTIPATION
     Route: 048
     Dates: start: 20190304, end: 20190308
  17. AMGEVITA [Concomitant]
     Active Substance: ADALIMUMAB
     Indication: CROHN^S DISEASE
     Route: 058
     Dates: start: 20190820, end: 20190821
  18. GAVISCON ADVANCE [Concomitant]
     Active Substance: POTASSIUM BICARBONATE\SODIUM ALGINATE
     Indication: DYSPEPSIA
  19. HYOSCINE BUTYLBROMIDE [Concomitant]
     Active Substance: BUTYLSCOPOLAMINE BROMIDE
     Indication: ABDOMINAL PAIN
     Route: 042
     Dates: start: 20200619
  20. BISACODYL. [Concomitant]
     Active Substance: BISACODYL
     Indication: CONSTIPATION
     Route: 054
     Dates: start: 20200717
  21. SODIUM PICOSULPHATE [Concomitant]
     Active Substance: SODIUM PICOSULFATE
     Route: 048
     Dates: start: 20190315, end: 20190320
  22. DICYCLOVERINE [Concomitant]
     Active Substance: DICYCLOMINE HYDROCHLORIDE
     Indication: CROHN^S DISEASE
     Route: 048
     Dates: start: 20141201
  23. DOCUSATE SODIUM. [Concomitant]
     Active Substance: DOCUSATE SODIUM
     Indication: CONSTIPATION
     Route: 048
     Dates: start: 20190802
  24. ONDANSETRON [Concomitant]
     Active Substance: ONDANSETRON
     Indication: NAUSEA
     Route: 048
     Dates: start: 20190701
  25. AMGEVITA [Concomitant]
     Active Substance: ADALIMUMAB
     Route: 058
     Dates: start: 20190918
  26. DANDRAZOL [Concomitant]
     Indication: SEBORRHOEIC DERMATITIS
     Dosage: AS DIRECTED
     Route: 061
     Dates: start: 20191128
  27. LAXIDO [Concomitant]
     Active Substance: POLYETHYLENE GLYCOL 3350\POTASSIUM CHLORIDE\SODIUM BICARBONATE\SODIUM CHLORIDE
     Dosage: DOSE:1?4 SACHETS
     Route: 048
     Dates: start: 20200422, end: 20200520
  28. AZATHIOPRINE. [Suspect]
     Active Substance: AZATHIOPRINE
     Indication: CROHN^S DISEASE
     Route: 048
     Dates: start: 20121011, end: 20181011
  29. DOCUSATE SODIUM. [Concomitant]
     Active Substance: DOCUSATE SODIUM
     Indication: CONSTIPATION
     Route: 048
     Dates: start: 20200417, end: 20200714
  30. CHLORPHENAMINE MALEATE [Concomitant]
     Active Substance: CHLORPHENIRAMINE MALEATE
     Indication: PRURITUS
     Route: 048
     Dates: start: 20190704
  31. NUTRISON MULTIFIBRE [Concomitant]
     Indication: NUTRITIONAL SUPPLEMENTATION
     Dosage: 1800?2400 ML?OVER 24 YEARS
     Route: 050
     Dates: start: 20190701
  32. FUSIDIC ACID [Concomitant]
     Active Substance: FUSIDIC ACID
     Indication: SKIN INFECTION
     Route: 061
     Dates: start: 20190716
  33. AMGEVITA [Concomitant]
     Active Substance: ADALIMUMAB
     Dosage: SINGLE DOSE
     Route: 058
     Dates: start: 20190904, end: 20190904
  34. LAXIDO [Concomitant]
     Active Substance: POLYETHYLENE GLYCOL 3350\POTASSIUM CHLORIDE\SODIUM BICARBONATE\SODIUM CHLORIDE
     Route: 048
     Dates: start: 20200211, end: 20200416
  35. HYOSCINE BUTYLBROMIDE [Concomitant]
     Active Substance: BUTYLSCOPOLAMINE BROMIDE
     Indication: CROHN^S DISEASE
     Route: 048
     Dates: start: 20190407, end: 20200127
  36. LACTULOSE. [Concomitant]
     Active Substance: LACTULOSE
     Indication: CONSTIPATION
     Route: 048
     Dates: start: 20200207, end: 20200211
  37. SODIUM PHOSPHATE [Concomitant]
     Active Substance: SODIUM PHOSPHATE
     Indication: CONSTIPATION
     Dosage: SINGLE DOSE FREQUENCY
     Route: 054
     Dates: start: 20200211, end: 20200211
  38. HUMIRA [Suspect]
     Active Substance: ADALIMUMAB
     Indication: CROHN^S DISEASE
     Route: 058
     Dates: start: 20131209, end: 20180430
  39. FOLIC ACID. [Concomitant]
     Active Substance: FOLIC ACID
     Indication: VITAMIN SUPPLEMENTATION
     Route: 048
     Dates: start: 20190629
  40. RELAXIT [Concomitant]
     Route: 054
     Dates: start: 20200421
  41. LAXIDO [Concomitant]
     Active Substance: POLYETHYLENE GLYCOL 3350\POTASSIUM CHLORIDE\SODIUM BICARBONATE\SODIUM CHLORIDE
     Dosage: 1?2 SACHETS
     Route: 048
     Dates: start: 20190813, end: 20191219
  42. HYOSCINE BUTYLBROMIDE [Concomitant]
     Active Substance: BUTYLSCOPOLAMINE BROMIDE
     Indication: PROPHYLAXIS

REACTIONS (3)
  - Impetigo [Recovered/Resolved]
  - Constipation [Not Recovered/Not Resolved]
  - Crohn^s disease [Recovered/Resolved]

NARRATIVE: CASE EVENT DATE: 20200402
